FAERS Safety Report 7002163-0 (Version None)
Quarter: 2010Q3

REPORT INFORMATION
  Report Type: 
  Country: None (occurrence: None)
  Receive Date: 20100920
  Receipt Date: 20100602
  Transmission Date: 20110219
  Serious: No
  Sender: FDA-Public Use
  Company Number: US-ASTRAZENECA-2010SE18386

PATIENT
  Age: 23 Year
  Sex: Female

DRUGS (12)
  1. SEROQUEL [Suspect]
     Indication: AGITATION
     Route: 048
  2. SEROQUEL [Suspect]
     Indication: SLEEP DISORDER
     Route: 048
  3. SEROQUEL [Suspect]
     Route: 048
  4. SEROQUEL [Suspect]
     Route: 048
  5. SEROQUEL [Suspect]
     Route: 048
  6. SEROQUEL [Suspect]
     Route: 048
  7. SEROQUEL [Suspect]
     Route: 048
  8. SEROQUEL [Suspect]
     Route: 048
  9. SEROQUEL [Suspect]
     Route: 048
     Dates: start: 20080101
  10. SEROQUEL [Suspect]
     Route: 048
     Dates: start: 20080101
  11. LAMICTAL [Concomitant]
  12. STRATTERA [Concomitant]

REACTIONS (7)
  - DYSPNOEA [None]
  - MIGRAINE [None]
  - NASAL CONGESTION [None]
  - NASOPHARYNGITIS [None]
  - PALPITATIONS [None]
  - PULMONARY CONGESTION [None]
  - SOMNOLENCE [None]
